FAERS Safety Report 10137249 (Version 1)
Quarter: 2014Q2

REPORT INFORMATION
  Report Type: Report from Study
  Country: US (occurrence: US)
  Receive Date: 20140429
  Receipt Date: 20140429
  Transmission Date: 20141212
  Serious: No
  Sender: FDA-Public Use
  Company Number: US-ABBVIE-14P-163-1211837-00

PATIENT
  Age: 63 Year
  Sex: Male
  Weight: 118.04 kg

DRUGS (4)
  1. ANDROGEL [Suspect]
     Indication: BLOOD TESTOSTERONE DECREASED
     Route: 061
     Dates: start: 201402
  2. VIAGRA [Concomitant]
     Indication: ERECTILE DYSFUNCTION
     Dosage: SEVERAL TIMES/WEEK
  3. PRAVASTATIN [Concomitant]
     Indication: BLOOD CHOLESTEROL INCREASED
  4. LOSARTAN [Concomitant]
     Indication: HYPERTENSION

REACTIONS (1)
  - Erectile dysfunction [Not Recovered/Not Resolved]
